FAERS Safety Report 11033538 (Version 1)
Quarter: 2015Q2

REPORT INFORMATION
  Report Type: Spontaneous
  Country: BR (occurrence: BR)
  Receive Date: 20150415
  Receipt Date: 20150415
  Transmission Date: 20150821
  Serious: Yes (Other)
  Sender: FDA-Public Use
  Company Number: BR-PFIZER INC-2015119485

PATIENT
  Age: 76 Year
  Sex: Female
  Weight: 60 kg

DRUGS (5)
  1. SELOZOK [Concomitant]
     Active Substance: METOPROLOL SUCCINATE
     Indication: PANIC DISORDER
     Dosage: ONE UNIT (UNSPECIFIED DOSE), PER DAY
  2. AMLODIPINE BESILATE [Concomitant]
     Active Substance: AMLODIPINE BESYLATE
     Indication: BLOOD PRESSURE INCREASED
     Dosage: ONE UNIT (UNSPECIFIED DOSE), DAILY
  3. OLMETEC HCT [Concomitant]
     Active Substance: HYDROCHLOROTHIAZIDE\OLMESARTAN MEDOXOMIL
     Indication: BLOOD PRESSURE INCREASED
     Dosage: ONE UNIT (40MG PLUS 12.5MG), DAILY
  4. LIPITOR [Suspect]
     Active Substance: ATORVASTATIN CALCIUM
     Indication: BLOOD CHOLESTEROL
     Dosage: ONE UNIT (40 MG), DAILY
     Route: 048
     Dates: end: 2011
  5. FRONTAL [Concomitant]
     Active Substance: ALPRAZOLAM
     Indication: SLEEP DISORDER
     Dosage: ONE UNIT (0.5 MG), DAILY (AT NIGHT)

REACTIONS (3)
  - Arterial occlusive disease [Unknown]
  - Anxiety [Unknown]
  - Feeling abnormal [Unknown]
